FAERS Safety Report 16633150 (Version 1)
Quarter: 2019Q3

REPORT INFORMATION
  Report Type: Report from Study
  Country: DE (occurrence: DE)
  Receive Date: 20190725
  Receipt Date: 20190725
  Transmission Date: 20191004
  Serious: Yes (Other)
  Sender: FDA-Public Use
  Company Number: DE-MYLANLABS-2019M1069094

PATIENT
  Age: 72 Year
  Sex: Male

DRUGS (12)
  1. MOXIFLOXACIN. [Suspect]
     Active Substance: MOXIFLOXACIN
     Indication: KLEBSIELLA INFECTION
  2. PREDNISOLONE. [Suspect]
     Active Substance: PREDNISOLONE
     Indication: KERATITIS BACTERIAL
     Dosage: UNK
     Route: 048
  3. GRAMICIDIN W/NEOMYCIN SULFATE/POLYMYCIN B [Suspect]
     Active Substance: GRAMICIDIN\NEOMYCIN SULFATE\POLYMYXIN B SULFATE
     Indication: KERATITIS BACTERIAL
     Dosage: UNK
     Route: 050
  4. MOXIFLOXACIN. [Suspect]
     Active Substance: MOXIFLOXACIN
     Indication: KERATITIS BACTERIAL
     Dosage: UNK
     Route: 048
  5. LEVOFLOXACIN. [Suspect]
     Active Substance: LEVOFLOXACIN
     Indication: KERATITIS BACTERIAL
     Dosage: UNK
     Route: 050
  6. LEVOFLOXACIN. [Suspect]
     Active Substance: LEVOFLOXACIN
     Indication: KLEBSIELLA INFECTION
  7. CYCLOPENTOLATE. [Suspect]
     Active Substance: CYCLOPENTOLATE
     Indication: KERATITIS BACTERIAL
     Dosage: UNK
     Route: 050
  8. PREDNISOLONE. [Suspect]
     Active Substance: PREDNISOLONE
     Indication: KLEBSIELLA INFECTION
  9. PHENYLEPHRINE [Suspect]
     Active Substance: PHENYLEPHRINE HYDROCHLORIDE
     Indication: KLEBSIELLA INFECTION
  10. CYCLOPENTOLATE. [Suspect]
     Active Substance: CYCLOPENTOLATE
     Indication: KLEBSIELLA INFECTION
  11. PHENYLEPHRINE [Suspect]
     Active Substance: PHENYLEPHRINE HYDROCHLORIDE
     Indication: KERATITIS BACTERIAL
     Dosage: UNK
     Route: 050
  12. GRAMICIDIN W/NEOMYCIN SULFATE/POLYMYCIN B [Suspect]
     Active Substance: GRAMICIDIN\NEOMYCIN SULFATE\POLYMYXIN B SULFATE
     Indication: KLEBSIELLA INFECTION

REACTIONS (1)
  - Drug ineffective [Unknown]
